FAERS Safety Report 4513050-1 (Version None)
Quarter: 2004Q4

REPORT INFORMATION
  Report Type: 
  Country: None (occurrence: None)
  Receive Date: 20041130
  Receipt Date: 20041001
  Transmission Date: 20050328
  Serious: Yes (Other)
  Sender: FDA-Public Use
  Company Number: DE-AMGEN-UK094062

PATIENT
  Sex: Male

DRUGS (7)
  1. AMG 099073 [Suspect]
     Indication: HYPERPARATHYROIDISM SECONDARY
     Route: 048
     Dates: start: 20040830, end: 20041001
  2. BISOPROLOL FUMARATE [Suspect]
  3. NEORECORMON [Suspect]
  4. CALCIUM CARBONATE [Suspect]
  5. IRON [Suspect]
  6. ASPIRIN [Suspect]
  7. METHYLPREDNISOLONE [Concomitant]
     Route: 065

REACTIONS (1)
  - LEUKOCYTOCLASTIC VASCULITIS [None]
